FAERS Safety Report 10453853 (Version 2)
Quarter: 2014Q3

REPORT INFORMATION
  Report Type: Report from Study
  Country: US (occurrence: US)
  Receive Date: 20140915
  Receipt Date: 20140915
  Transmission Date: 20150326
  Serious: Yes (Death, Other)
  Sender: FDA-Public Use
  Company Number: US-ASTELLAS-2014US012231

PATIENT
  Sex: Male

DRUGS (1)
  1. ERLOTINIB [Suspect]
     Active Substance: ERLOTINIB
     Indication: GLOTTIS CARCINOMA
     Route: 048

REACTIONS (6)
  - Hypoxia [Fatal]
  - Infection [Fatal]
  - Anaemia [Fatal]
  - Malignant neoplasm progression [Unknown]
  - Multi-organ failure [Fatal]
  - Cachexia [Fatal]
